FAERS Safety Report 13000391 (Version 2)
Quarter: 2016Q4

REPORT INFORMATION
  Report Type: Spontaneous
  Country: BE (occurrence: BE)
  Receive Date: 20161206
  Receipt Date: 20161210
  Transmission Date: 20170207
  Serious: Yes (Hospitalization, Other)
  Sender: FDA-Public Use
  Company Number: BE-AMGEN-BELSP2016137524

PATIENT
  Age: 62 Year
  Sex: Female

DRUGS (14)
  1. CALCIUM CARBONATE. [Concomitant]
     Active Substance: CALCIUM CARBONATE
  2. ZNOXIDE [Concomitant]
  3. ENBREL [Suspect]
     Active Substance: ETANERCEPT
     Indication: RHEUMATOID ARTHRITIS
     Dosage: 50 MG, WEEKLY
     Route: 058
  4. DOCUSATE SOD [Concomitant]
     Dosage: UNK
  5. THIAMIN [Concomitant]
     Active Substance: THIAMINE
  6. FUMAFER [Concomitant]
     Active Substance: FERROUS FUMARATE
     Dosage: UNK
  7. NICOTINAMIDE [Concomitant]
     Active Substance: NIACINAMIDE
  8. CELEBREX [Concomitant]
     Active Substance: CELECOXIB
     Dosage: 100 UNK, 2X/DAY
     Route: 048
  9. D-CURE [Concomitant]
     Dosage: UNK, WEEKLY
  10. FOLATE [Suspect]
     Active Substance: FOLATE SODIUM
     Indication: PRODUCT USED FOR UNKNOWN INDICATION
     Route: 065
  11. PANTOPRAZOL [Concomitant]
     Active Substance: PANTOPRAZOLE SODIUM
     Dosage: 40 UNK, UNK
  12. TRADONAL [Concomitant]
     Active Substance: TRAMADOL HYDROCHLORIDE
     Dosage: 100 UNK, AS NEEDED
  13. PANTOTHEN [Concomitant]
  14. RIBOFLAVIN [Concomitant]
     Active Substance: RIBOFLAVIN

REACTIONS (5)
  - Colitis [Recovered/Resolved]
  - Diverticulitis [Recovered/Resolved]
  - Back pain [Unknown]
  - Myalgia [Unknown]
  - Spinal cord infection [Not Recovered/Not Resolved]

NARRATIVE: CASE EVENT DATE: 201609
